FAERS Safety Report 6095805-8 (Version None)
Quarter: 2009Q1

REPORT INFORMATION
  Report Type: 
  Country: None (occurrence: None)
  Receive Date: 20090227
  Receipt Date: 20080708
  Transmission Date: 20090719
  Serious: No
  Sender: FDA-Public Use
  Company Number: A0733700A

PATIENT
  Age: 25 Year
  Sex: Female
  Weight: 54.5 kg

DRUGS (5)
  1. LAMICTAL [Suspect]
     Indication: DRUG USE FOR UNKNOWN INDICATION
     Dosage: 200MG UNKNOWN
     Route: 048
     Dates: start: 20071023, end: 20080624
  2. EFFEXOR XR [Concomitant]
     Indication: MAJOR DEPRESSION
     Dosage: 112.5MG UNKNOWN
     Route: 048
     Dates: start: 20060328
  3. WELLBUTRIN XL [Concomitant]
     Indication: MAJOR DEPRESSION
     Route: 048
     Dates: start: 20060829
  4. LORAZEPAM [Concomitant]
     Dosage: .5MG AS REQUIRED
     Route: 048
     Dates: start: 20060418
  5. PRAZSOIN HCL [Concomitant]
     Dosage: 3MG AT NIGHT
     Route: 048
     Dates: start: 20080522

REACTIONS (1)
  - CONTUSION [None]
